FAERS Safety Report 10035218 (Version 1)
Quarter: 2014Q1

REPORT INFORMATION
  Report Type: Report from Study
  Country: DE (occurrence: DE)
  Receive Date: 20140325
  Receipt Date: 20140325
  Transmission Date: 20141002
  Serious: No
  Sender: FDA-Public Use
  Company Number: PHHY2014DE035250

PATIENT
  Sex: Male

DRUGS (4)
  1. AMN107 [Suspect]
     Indication: CHRONIC MYELOID LEUKAEMIA
     Dosage: 600 MG PER DAY
     Route: 048
     Dates: start: 20131122
  2. RAMIPRIL [Concomitant]
     Dosage: 5 MG, UNK
  3. L THYROXIN [Concomitant]
  4. ALLOPURINOL [Concomitant]

REACTIONS (1)
  - General physical health deterioration [Recovered/Resolved]
